FAERS Safety Report 18654918 (Version 1)
Quarter: 2020Q4

REPORT INFORMATION
  Report Type: Spontaneous
  Country: US (occurrence: US)
  Receive Date: 20201223
  Receipt Date: 20201223
  Transmission Date: 20210114
  Serious: No
  Sender: FDA-Public Use
  Company Number: None

PATIENT
  Age: 52 Year
  Sex: Female
  Weight: 63 kg

DRUGS (22)
  1. CAPECITABINE. [Suspect]
     Active Substance: CAPECITABINE
     Indication: BREAST CANCER FEMALE
     Route: 048
     Dates: start: 20200815
  2. TYLENOL EXTRA STRENGTH, PO [Concomitant]
  3. MELOXICAM, PO [Concomitant]
  4. IMIPRAMINE HCL, PO [Concomitant]
  5. LUPRON DEPOT (3-MONTH), IM [Concomitant]
  6. DEXTROAMPHETAMINE SULFATE ER, PO [Concomitant]
  7. PSYLLIUM FIBER, PO [Concomitant]
  8. PYRIDOXINE HCL, PO [Concomitant]
  9. SENNOSIDES-DOCUSATE SODIUM, PO [Concomitant]
  10. TUKYSA, OR [Concomitant]
  11. ANASTRAZOLE, PO [Concomitant]
  12. CALCIUM CARBONATE- VITAMIN D3. PO [Concomitant]
  13. PROCHLORPERAZINE MALEATE, PO [Concomitant]
  14. GABAPENTIN, PO [Concomitant]
  15. ONDANSETRON, PO [Concomitant]
  16. HERCEPTIN, IV [Concomitant]
  17. VENLAFAXINE ER, PO [Concomitant]
  18. XGEVA, SC [Concomitant]
  19. FAMOTIDINE, PO [Concomitant]
  20. FEXOFENADINE, PO [Concomitant]
  21. ALPRAZOLAM, PO [Concomitant]
  22. CARVEDILOL, PO [Concomitant]

REACTIONS (2)
  - Fatigue [None]
  - Palmar-plantar erythrodysaesthesia syndrome [None]

NARRATIVE: CASE EVENT DATE: 20201223
